FAERS Safety Report 19845580 (Version 1)
Quarter: 2021Q3

REPORT INFORMATION
  Report Type: Spontaneous
  Country: US (occurrence: US)
  Receive Date: 20210916
  Receipt Date: 20210916
  Transmission Date: 20211014
  Serious: Yes (Hospitalization)
  Sender: FDA-Public Use
  Company Number: US-ALLERGAN-2130738US

PATIENT
  Sex: Female
  Weight: 90.72 kg

DRUGS (3)
  1. ENABLEX [Suspect]
     Active Substance: DARIFENACIN HYDROBROMIDE
     Indication: URINARY INCONTINENCE
     Dosage: UNK
     Dates: end: 201910
  2. WARFARIN [Concomitant]
     Active Substance: WARFARIN
  3. TAMOXIFEN [Concomitant]
     Active Substance: TAMOXIFEN
     Indication: BREAST CANCER

REACTIONS (3)
  - Lymphoedema [Unknown]
  - Heart valve replacement [Unknown]
  - Drug hypersensitivity [Unknown]
